FAERS Safety Report 9288794 (Version 1)
Quarter: 2013Q2

REPORT INFORMATION
  Report Type: Spontaneous
  Country: US (occurrence: US)
  Receive Date: 20130508
  Receipt Date: 20130508
  Transmission Date: 20140414
  Serious: Yes (Other)
  Sender: FDA-Public Use
  Company Number: US-RB-053216-13

PATIENT
  Age: 48 Year
  Sex: Female

DRUGS (1)
  1. SUBOXONE TABLET [Suspect]
     Indication: DRUG DEPENDENCE
     Route: 060

REACTIONS (2)
  - Non-Hodgkin^s lymphoma [Recovered/Resolved]
  - Weight decreased [Recovered/Resolved]
